FAERS Safety Report 9217447 (Version 1)
Quarter: 2013Q2

REPORT INFORMATION
  Report Type: Spontaneous
  Country: US (occurrence: US)
  Receive Date: 20130408
  Receipt Date: 20130408
  Transmission Date: 20140414
  Serious: No
  Sender: FDA-Public Use
  Company Number: US-BAYER-2013-044159

PATIENT
  Sex: Female

DRUGS (5)
  1. ALEVE CAPLET [Suspect]
     Indication: ARTHRITIS
     Dosage: UNK DF, UNK
     Route: 048
  2. CELEBREX [Concomitant]
     Dosage: UNK
  3. BIOFREEZE [Concomitant]
     Dosage: UNK
  4. CAPZASIN [Concomitant]
     Dosage: UNK
  5. IBUPROFEN [IBUPROFEN] [Concomitant]

REACTIONS (1)
  - Drug ineffective [None]
